FAERS Safety Report 10997094 (Version 2)
Quarter: 2015Q2

REPORT INFORMATION
  Report Type: Report from Study
  Country: JP (occurrence: JP)
  Receive Date: 20150408
  Receipt Date: 20150518
  Transmission Date: 20150821
  Serious: Yes (Hospitalization, Disabling)
  Sender: FDA-Public Use
  Company Number: JP-PFIZER INC-2015116015

PATIENT
  Age: 75 Year
  Sex: Female
  Weight: 43 kg

DRUGS (5)
  1. XALKORI [Suspect]
     Active Substance: CRIZOTINIB
     Dosage: 200 MG, 2X/DAY
     Route: 048
     Dates: start: 20140127, end: 20140219
  2. MAG-LAX [Concomitant]
     Active Substance: MAGNESIUM HYDROXIDE\PARAFFIN
     Dosage: 660 MG, 3X/DAY
     Route: 048
  3. DAIKENTYUTO [Concomitant]
     Active Substance: HERBALS
     Dosage: 2.5 MG, 3X/DAY
     Route: 048
  4. VOLTAREN [Concomitant]
     Active Substance: DICLOFENAC SODIUM
     Dosage: 25 MG, 2X/DAY
     Route: 048
  5. XALKORI [Suspect]
     Active Substance: CRIZOTINIB
     Indication: NON-SMALL CELL LUNG CANCER
     Dosage: 250 MG, 2X/DAY
     Route: 048
     Dates: start: 20131125, end: 20131219

REACTIONS (2)
  - Oesophagitis [Recovering/Resolving]
  - Oesophagitis [Recovering/Resolving]

NARRATIVE: CASE EVENT DATE: 201312
